FAERS Safety Report 12660020 (Version 1)
Quarter: 2016Q3

REPORT INFORMATION
  Report Type: Spontaneous
  Country: IL (occurrence: IL)
  Receive Date: 20160817
  Receipt Date: 20160817
  Transmission Date: 20161109
  Serious: Yes (Other)
  Sender: FDA-Public Use
  Company Number: IL-DUCHESNAY INC.-1056414

PATIENT
  Age: 43 Year
  Sex: Female
  Weight: 58 kg

DRUGS (2)
  1. DICLEGIS [Suspect]
     Active Substance: DOXYLAMINE SUCCINATE\PYRIDOXINE HYDROCHLORIDE
     Indication: VOMITING IN PREGNANCY
     Route: 048
     Dates: start: 20160727, end: 20160728
  2. FLUOXETINE HYDROCHLORIDE. [Concomitant]
     Active Substance: FLUOXETINE HYDROCHLORIDE

REACTIONS (2)
  - Somnolence [Recovered/Resolved]
  - Foetal hypokinesia [Recovered/Resolved]

NARRATIVE: CASE EVENT DATE: 20160727
